FAERS Safety Report 8896164 (Version 4)
Quarter: 2013Q1

REPORT INFORMATION
  Report Type: Spontaneous
  Country: US (occurrence: US)
  Receive Date: 20121108
  Receipt Date: 20130214
  Transmission Date: 20140127
  Serious: Yes (Hospitalization, Other)
  Sender: FDA-Public Use
  Company Number: US-ASTRAZENECA-2010SE28416

PATIENT
  Age: 57 Year
  Sex: Female

DRUGS (4)
  1. NEXIUM [Suspect]
     Indication: GASTROOESOPHAGEAL REFLUX DISEASE
     Route: 048
  2. NEXIUM [Suspect]
     Indication: GASTROOESOPHAGEAL REFLUX DISEASE
     Dosage: DOUBLED THE STRENGTH
     Route: 048
  3. SYMBICORT PMDI [Suspect]
     Dosage: UNKNOWN FREQUENCY
     Route: 055
  4. CRESTOR [Suspect]
     Route: 048

REACTIONS (12)
  - Coronary artery occlusion [Unknown]
  - Pneumonia [Recovered/Resolved]
  - Dyspepsia [Unknown]
  - Cardiac disorder [Unknown]
  - Lung disorder [Unknown]
  - Mental disorder [Unknown]
  - Gastrooesophageal reflux disease [Unknown]
  - Arterial occlusive disease [Unknown]
  - Chronic obstructive pulmonary disease [Unknown]
  - Adverse event [Unknown]
  - Drug dose omission [Unknown]
  - Drug ineffective [Unknown]
